FAERS Safety Report 9580019 (Version 1)
Quarter: 2013Q3

REPORT INFORMATION
  Report Type: Spontaneous
  Country: DE (occurrence: None)
  Receive Date: 20130916
  Receipt Date: 20130916
  Transmission Date: 20140515
  Serious: Yes (Other)
  Sender: FDA-Public Use
  Company Number: JPI-P-025571

PATIENT
  Age: 14 Year
  Sex: Female

DRUGS (1)
  1. XYREM (500 MILLIGRAM/MILLILITERS, SOLUTION) (SODIUM OXYBATE) [Suspect]
     Indication: PRODUCT USED FOR UNKNOWN INDICATION
     Dosage: 3 GM  (1.5 GM, 2 IN 1 D), ORAL
     Route: 048
     Dates: end: 201209

REACTIONS (3)
  - Coma [None]
  - Accidental overdose [None]
  - Blood creatine phosphokinase increased [None]
